FAERS Safety Report 4300211-X (Version None)
Quarter: 2004Q1

REPORT INFORMATION
  Report Type: 
  Country: None (occurrence: None)
  Receive Date: 20040218
  Receipt Date: 20040212
  Transmission Date: 20041129
  Serious: Yes (Other)
  Sender: FDA-Public Use
  Company Number: STA-AE-04-MTX-057

PATIENT
  Age: 45 Year
  Sex: Female

DRUGS (4)
  1. METHOTREXATE [Suspect]
     Dosage: 15 MG 1X PER 1 WK, ORAL
     Route: 048
     Dates: start: 20020501, end: 20040114
  2. ENBREL [Suspect]
     Dosage: 25 MG 2X PER 1 WK, SC
     Route: 058
     Dates: start: 20030215, end: 20040114
  3. FOLIC ACID [Concomitant]
  4. ATENOLOL [Concomitant]

REACTIONS (3)
  - CORYNEBACTERIUM INFECTION [None]
  - STAPHYLOCOCCAL INFECTION [None]
  - TUBO-OVARIAN ABSCESS [None]
